FAERS Safety Report 4420475-1 (Version None)
Quarter: 2004Q3

REPORT INFORMATION
  Report Type: 
  Country: None (occurrence: None)
  Receive Date: 20040805
  Receipt Date: 20040805
  Transmission Date: 20050211
  Serious: Yes (Other)
  Sender: FDA-Public Use
  Company Number: None

PATIENT
  Age: 59 Year
  Sex: Male
  Weight: 107.8 kg

DRUGS (9)
  1. TERAZOSIN HCL [Suspect]
  2. NAPROXEN [Concomitant]
  3. SERTRALINE HCL [Concomitant]
  4. TRAMADOL HCL [Concomitant]
  5. ATENOLOL [Concomitant]
  6. IRBESARTAN [Concomitant]
  7. OMEPRAZOLE [Concomitant]
  8. SIMVASTATIN [Concomitant]
  9. TERAZOSIN HCL [Concomitant]

REACTIONS (4)
  - ARTHRALGIA [None]
  - EPISTAXIS [None]
  - FATIGUE [None]
  - HEADACHE [None]
